FAERS Safety Report 26087763 (Version 2)
Quarter: 2025Q4

REPORT INFORMATION
  Report Type: Report from Study
  Country: US (occurrence: US)
  Receive Date: 20251125
  Receipt Date: 20251210
  Transmission Date: 20260118
  Serious: Yes (Hospitalization)
  Sender: PFIZER
  Company Number: US-PFIZER INC-PV202500135831

PATIENT
  Age: 50 Year
  Sex: Male

DRUGS (7)
  1. CEFPODOXIME PROXETIL [Suspect]
     Active Substance: CEFPODOXIME PROXETIL
     Indication: Pancreatitis
     Dosage: UNK
     Dates: start: 20250805, end: 20250810
  2. METRONIDAZOLE [Suspect]
     Active Substance: METRONIDAZOLE
     Indication: Pancreatitis
     Dosage: UNK
     Dates: start: 20250805, end: 20250810
  3. OSAVAMPATOR [Suspect]
     Active Substance: OSAVAMPATOR
     Dosage: 1 MG, ONCE DAILY
     Route: 048
     Dates: end: 20250802
  4. OSAVAMPATOR [Suspect]
     Active Substance: OSAVAMPATOR
     Dosage: UNK
     Dates: start: 20250805, end: 20250816
  5. SERTRALINE [Concomitant]
     Active Substance: SERTRALINE HYDROCHLORIDE
     Indication: Major depression
     Dosage: UNK
     Dates: start: 2018
  6. TRAZODONE [Concomitant]
     Active Substance: TRAZODONE HYDROCHLORIDE
     Indication: Insomnia
     Dosage: UNK
     Dates: start: 2020
  7. PANTOPRAZOLE [Concomitant]
     Active Substance: PANTOPRAZOLE
     Indication: Gastrooesophageal reflux disease
     Dosage: UNK
     Dates: start: 20250723

REACTIONS (1)
  - Clostridium difficile colitis [Recovered/Resolved]

NARRATIVE: CASE EVENT DATE: 20250817
